FAERS Safety Report 7722132-2 (Version None)
Quarter: 2011Q3

REPORT INFORMATION
  Report Type: 
  Country: None (occurrence: None)
  Receive Date: 20110831
  Receipt Date: 20110823
  Transmission Date: 20111222
  Serious: Yes (Death, Hospitalization)
  Sender: FDA-Public Use
  Company Number: US-PFIZER INC-2011177293

PATIENT
  Sex: Male

DRUGS (8)
  1. SUTENT [Suspect]
     Indication: LUNG NEOPLASM MALIGNANT
     Dosage: 50 MG, 1X/DAY, DOSE NOT GIVEN
     Route: 048
  2. ABILIFY [Concomitant]
     Dosage: 2 MG, UNK
  3. GLIPIZIDE [Concomitant]
     Dosage: 2.5 MG, UNK
  4. ALDACTONE [Concomitant]
     Dosage: 25 MG, UNK
  5. BUSPAR [Concomitant]
     Dosage: 10 MG, UNK
  6. OMEPRAZOLE [Concomitant]
     Dosage: 10 MG, UNK
  7. LEXAPRO [Concomitant]
     Dosage: 10 MG, UNK
  8. SYNTHROID [Concomitant]
     Dosage: 100 UG, UNK

REACTIONS (3)
  - FAILURE TO THRIVE [None]
  - DEATH [None]
  - DYSPHAGIA [None]
